FAERS Safety Report 5741012-5 (Version None)
Quarter: 2008Q2

REPORT INFORMATION
  Report Type: 
  Country: None (occurrence: None)
  Receive Date: 20080516
  Receipt Date: 20080505
  Transmission Date: 20081010
  Serious: Yes (Life-Threatening)
  Sender: FDA-Public Use
  Company Number: FR-PFIZER INC-2008039084

PATIENT
  Age: 38 Year
  Sex: Male

DRUGS (7)
  1. ANSATIPINE [Suspect]
     Route: 048
     Dates: start: 20070614, end: 20080208
  2. ISONIAZID [Suspect]
     Dosage: TEXT:2 DF-FREQ:INTERVAL: EVERY DAY
     Dates: start: 20070511, end: 20080208
  3. KALETRA [Suspect]
     Dosage: TEXT:4 DF
     Route: 048
     Dates: start: 20070614, end: 20080208
  4. TRUVADA [Concomitant]
  5. MYAMBUTOL [Concomitant]
     Dates: start: 20070511, end: 20071207
  6. PIRILENE [Concomitant]
     Dates: start: 20070511, end: 20071207
  7. BACTRIM [Concomitant]
     Dates: start: 20070511

REACTIONS (3)
  - CELL DEATH [None]
  - CHOLESTASIS [None]
  - NEUTROPENIA [None]
